FAERS Safety Report 24149864 (Version 1)
Quarter: 2024Q3

REPORT INFORMATION
  Report Type: Report from Study
  Country: US (occurrence: None)
  Receive Date: 20240730
  Receipt Date: 20240730
  Transmission Date: 20241016
  Serious: Yes (Hospitalization)
  Sender: ASTRAZENECA
  Company Number: 2021A417875

PATIENT
  Sex: Female

DRUGS (1)
  1. FASENRA [Suspect]
     Active Substance: BENRALIZUMAB
     Indication: Asthma
     Dosage: 30MG ,WEEK 0,4 AND 8
     Route: 058
     Dates: start: 20201004

REACTIONS (3)
  - Angina pectoris [Unknown]
  - Nausea [Unknown]
  - Vomiting [Unknown]
